FAERS Safety Report 6392352-0 (Version None)
Quarter: 2009Q4

REPORT INFORMATION
  Report Type: 
  Country: None (occurrence: None)
  Receive Date: 20091007
  Receipt Date: 20090929
  Transmission Date: 20100525
  Serious: Yes (Hospitalization)
  Sender: FDA-Public Use
  Company Number: PHHO2009US11343

PATIENT
  Sex: Male
  Weight: 72.109 kg

DRUGS (2)
  1. RAD 666 RAD+TAB [Suspect]
     Indication: RENAL CELL CARCINOMA
     Dosage: 35MG/WEEKLY
     Route: 048
     Dates: start: 20090512, end: 20090911
  2. SORAFENIB [Concomitant]
     Indication: RENAL CELL CARCINOMA
     Dosage: 400MG/QD
     Route: 048
     Dates: start: 20090512, end: 20090911

REACTIONS (5)
  - ABDOMINAL CAVITY DRAINAGE [None]
  - ABDOMINAL DISCOMFORT [None]
  - ABDOMINAL PAIN UPPER [None]
  - ASCITES [None]
  - PORTAL HYPERTENSION [None]
